FAERS Safety Report 23029235 (Version 1)
Quarter: 2023Q4

REPORT INFORMATION
  Report Type: Report from Study
  Country: US (occurrence: None)
  Receive Date: 20231004
  Receipt Date: 20231004
  Transmission Date: 20240109
  Serious: Yes (Hospitalization)
  Sender: FDA-Public Use
  Company Number: US-Eisai Medical Research-EC-2023-150052

PATIENT
  Age: 64 Year
  Sex: Female
  Weight: 82.27 kg

DRUGS (2)
  1. LENVIMA [Suspect]
     Active Substance: LENVATINIB
     Indication: Endometrial cancer
     Route: 048
     Dates: start: 20220801, end: 2022
  2. LENVIMA [Suspect]
     Active Substance: LENVATINIB
     Route: 048
     Dates: end: 202309

REACTIONS (2)
  - Diverticulitis [Unknown]
  - Small intestinal perforation [Unknown]

NARRATIVE: CASE EVENT DATE: 20230925
